FAERS Safety Report 18974099 (Version 2)
Quarter: 2021Q1

REPORT INFORMATION
  Report Type: Report from Study
  Country: PK (occurrence: PK)
  Receive Date: 20210305
  Receipt Date: 20210315
  Transmission Date: 20210420
  Serious: Yes (Other)
  Sender: FDA-Public Use
  Company Number: NVSC2021PK045886

PATIENT
  Age: 29 Year
  Sex: Male

DRUGS (4)
  1. COSENTYX [Suspect]
     Active Substance: SECUKINUMAB
     Indication: PSORIATIC ARTHROPATHY
     Dosage: 150 MG, QW (150 MG 5 WEEKS (L.D) THAN 150 MG MONTHLY BASIS FOR TWO MONTHS)
     Route: 058
     Dates: start: 20191013, end: 20191221
  2. COSENTYX [Suspect]
     Active Substance: SECUKINUMAB
     Dosage: 150 MG, Q2MO (EVERY 8 WEEKLY 2 MONTHS)
     Route: 058
     Dates: start: 20201231
  3. COSENTYX [Suspect]
     Active Substance: SECUKINUMAB
     Dosage: 150 MG, Q2MO (EVERY 8 WEEKLY)
     Route: 058
     Dates: start: 20200214, end: 20200604
  4. COSENTYX [Suspect]
     Active Substance: SECUKINUMAB
     Dosage: 150 MG, QMO
     Route: 058
     Dates: start: 20200710, end: 20201228

REACTIONS (5)
  - Hypokinesia [Not Recovered/Not Resolved]
  - Inappropriate schedule of product administration [Not Recovered/Not Resolved]
  - Joint swelling [Not Recovered/Not Resolved]
  - Arthralgia [Not Recovered/Not Resolved]
  - Pain [Recovered/Resolved]

NARRATIVE: CASE EVENT DATE: 20200214
